FAERS Safety Report 4357880-8 (Version None)
Quarter: 2004Q2

REPORT INFORMATION
  Report Type: 
  Country: None (occurrence: None)
  Receive Date: 20040514
  Receipt Date: 20040409
  Transmission Date: 20050107
  Serious: Yes (Hospitalization)
  Sender: FDA-Public Use
  Company Number: PHBS2004JP04830

PATIENT
  Age: 45 Year
  Sex: Male
  Weight: 85 kg

DRUGS (5)
  1. LAMISIL [Suspect]
     Indication: NAIL TINEA
     Dosage: 125 MG/D
     Route: 048
     Dates: start: 20040312, end: 20040324
  2. NORVASC [Concomitant]
     Indication: HYPERTENSION
     Dosage: 5 MG/D
     Route: 048
     Dates: start: 20040301
  3. DIPYRIDAMOLE [Concomitant]
     Dosage: 45 MG/D
     Route: 048
  4. DEPAS [Concomitant]
     Dosage: 0.5 MG/D
     Route: 048
  5. LIPANTIL [Suspect]
     Dosage: 300 MG/D
     Route: 048
     Dates: start: 20040309, end: 20040329

REACTIONS (4)
  - DRUG INTERACTION [None]
  - HEPATIC FUNCTION ABNORMAL [None]
  - HEPATITIS ACUTE [None]
  - STOMACH DISCOMFORT [None]
